FAERS Safety Report 19988298 (Version 1)
Quarter: 2021Q4

REPORT INFORMATION
  Report Type: Spontaneous
  Country: BR (occurrence: BR)
  Receive Date: 20211022
  Receipt Date: 20211022
  Transmission Date: 20220303
  Serious: Yes (Death, Hospitalization)
  Sender: FDA-Public Use
  Company Number: BR-BIOMARINAP-BR-2021-139188

PATIENT
  Age: 10 Year
  Sex: Male
  Weight: 15 kg

DRUGS (1)
  1. VIMIZIM [Suspect]
     Active Substance: ELOSULFASE ALFA
     Indication: Mucopolysaccharidosis IV
     Dosage: UNK, QW
     Route: 042
     Dates: start: 20200921

REACTIONS (6)
  - Urinary tract infection [Fatal]
  - Oliguria [Unknown]
  - Dysuria [Unknown]
  - Prepuce redundant [Unknown]
  - Oedema peripheral [Unknown]
  - Renal disorder [Unknown]

NARRATIVE: CASE EVENT DATE: 20211016
